FAERS Safety Report 8737823 (Version 2)
Quarter: 2013Q4

REPORT INFORMATION
  Report Type: Spontaneous
  Country: US (occurrence: US)
  Receive Date: 20120822
  Receipt Date: 20131106
  Transmission Date: 20140711
  Serious: Yes (Hospitalization)
  Sender: FDA-Public Use
  Company Number: US-009507513-1207USA010622

PATIENT
  Age: 45 Year
  Sex: Male

DRUGS (6)
  1. ZOCOR [Suspect]
     Dosage: UNK
     Route: 048
  2. ZOCOR [Interacting]
     Dosage: UNK
  3. BRILIQUE [Suspect]
     Route: 048
  4. ASS 100 [Concomitant]
     Route: 048
  5. RAMIPRIL [Concomitant]
     Route: 048
  6. METOPROLOL [Concomitant]
     Route: 048

REACTIONS (5)
  - Drug interaction [Unknown]
  - Blood creatine phosphokinase increased [Unknown]
  - Liver function test abnormal [Unknown]
  - Rhabdomyolysis [Unknown]
  - Pain in extremity [Unknown]
